FAERS Safety Report 8359171-7 (Version None)
Quarter: 2012Q2

REPORT INFORMATION
  Report Type: 
  Country: None (occurrence: None)
  Receive Date: 20120511
  Receipt Date: 20120425
  Transmission Date: 20120825
  Serious: Yes (Other)
  Sender: FDA-Public Use
  Company Number: 1269964

PATIENT

DRUGS (2)
  1. SODIUM CHLORIDE 0.9% [Suspect]
     Dosage: TRANSPLACENTAL
     Route: 064
  2. FENTANYL CITRATE [Suspect]
     Dosage: TRANSPLACENTAL
     Route: 064

REACTIONS (2)
  - MATERNAL DRUGS AFFECTING FOETUS [None]
  - BRADYCARDIA [None]
